FAERS Safety Report 15965657 (Version 1)
Quarter: 2019Q1

REPORT INFORMATION
  Report Type: Spontaneous
  Country: ID (occurrence: ID)
  Receive Date: 20190215
  Receipt Date: 20190215
  Transmission Date: 20190418
  Serious: Yes (Hospitalization, Other)
  Sender: FDA-Public Use
  Company Number: ID-ROCHE-2261771

PATIENT
  Age: 50 Year
  Sex: Female

DRUGS (7)
  1. PERJETA [Suspect]
     Active Substance: PERTUZUMAB
     Indication: BONE CANCER METASTATIC
     Route: 065
     Dates: start: 201807
  2. DOCETAXEL. [Suspect]
     Active Substance: DOCETAXEL
     Indication: HEPATIC CANCER METASTATIC
  3. HERCEPTIN [Suspect]
     Active Substance: TRASTUZUMAB
     Indication: BONE CANCER METASTATIC
     Route: 065
     Dates: start: 201807
  4. HERCEPTIN [Suspect]
     Active Substance: TRASTUZUMAB
     Indication: HEPATIC CANCER METASTATIC
  5. HALAVEN [Concomitant]
     Active Substance: ERIBULIN MESYLATE
  6. DOCETAXEL. [Suspect]
     Active Substance: DOCETAXEL
     Indication: BONE CANCER METASTATIC
     Route: 065
  7. PERJETA [Suspect]
     Active Substance: PERTUZUMAB
     Indication: HEPATIC CANCER METASTATIC

REACTIONS (3)
  - Fracture [Recovering/Resolving]
  - Neutropenia [Recovered/Resolved]
  - Rash [Recovered/Resolved]
